FAERS Safety Report 10982978 (Version 1)
Quarter: 2015Q2

REPORT INFORMATION
  Report Type: Spontaneous
  Country: ES (occurrence: ES)
  Receive Date: 20150403
  Receipt Date: 20150403
  Transmission Date: 20150821
  Serious: Yes (Other)
  Sender: FDA-Public Use
  Company Number: ES-AMGEN-ESPSP2014102424

PATIENT
  Age: 66 Year
  Sex: Male

DRUGS (17)
  1. VYTORIN [Concomitant]
     Active Substance: EZETIMIBE\SIMVASTATIN
     Indication: BLOOD CHOLESTEROL
     Dosage: 10 MG/40 MG
  2. PREVENCOR                          /01326102/ [Concomitant]
     Indication: BLOOD CHOLESTEROL
     Dosage: 20 MG, ONCE A DAY
  3. ENALAPRIL [Concomitant]
     Active Substance: ENALAPRIL
     Dosage: 0.5 DF, DAILY (HALF A DAY)
  4. ENBREL [Interacting]
     Active Substance: ETANERCEPT
     Dosage: 50 MG, WEEKLY (ON FRIDAYS)
     Route: 058
  5. IDAPTAN [Interacting]
     Active Substance: TRIMETAZIDINE DIHYDROCHLORIDE
     Indication: VERTIGO
     Dosage: 20 MG, THREE TIMES A DAY
     Route: 065
     Dates: end: 2015
  6. OMEPRAZOLE. [Concomitant]
     Active Substance: OMEPRAZOLE
     Dosage: 20 MG, TWICE A DAY
  7. ENALAPRIL [Concomitant]
     Active Substance: ENALAPRIL
     Indication: HYPERTENSION
     Dosage: 0.5 DF, DAILY (HALF A DAY)
  8. PREDNISONE. [Concomitant]
     Active Substance: PREDNISONE
     Indication: PSORIATIC ARTHROPATHY
     Dosage: 7.5 MG, DAILY (5 MG IN THE MORNING AND 2.5 MG IN THE AFTERNOON)
  9. PREDNISONE. [Concomitant]
     Active Substance: PREDNISONE
     Dosage: 7.5 MG, DAILY (5 MG IN THE MORNING AND 2.5 MG IN THE AFTERNOON)
  10. ENBREL [Suspect]
     Active Substance: ETANERCEPT
     Indication: PSORIATIC ARTHROPATHY
     Dosage: 50 MG, WEEKLY (ON FRIDAYS)
     Route: 058
     Dates: start: 20141107
  11. CEMIDON [Concomitant]
     Active Substance: ISONIAZID
     Indication: PROPHYLAXIS
     Dosage: 300 MG ONCE A DAY BEFORE BREAKFAST
  12. OMEPRAZOLE. [Concomitant]
     Active Substance: OMEPRAZOLE
     Indication: PROPHYLAXIS
     Dosage: 20 MG, TWICE A DAY
  13. ZYLORIC [Concomitant]
     Active Substance: ALLOPURINOL
     Indication: BLOOD URIC ACID
     Dosage: 100 MG, TWICE A DAY
  14. EZETIMIBA [Concomitant]
     Indication: BLOOD CHOLESTEROL
     Dosage: 10 MG, ONCE DAILY AT LUNCH
  15. ENBREL [Interacting]
     Active Substance: ETANERCEPT
     Dosage: 50 MG, WEEKLY
     Route: 058
  16. CELEBREX [Interacting]
     Active Substance: CELECOXIB
     Indication: PSORIATIC ARTHROPATHY
     Dosage: 200 MG, ONCE A DAY
     Route: 065
     Dates: end: 2015
  17. ACETAMINOPHEN. [Concomitant]
     Active Substance: ACETAMINOPHEN
     Indication: PAIN
     Dosage: 1 OR 2 PER DAY AS NEEDED

REACTIONS (10)
  - Drug interaction [Recovering/Resolving]
  - Urticaria [Unknown]
  - Tendon disorder [Recovering/Resolving]
  - Tremor [Recovering/Resolving]
  - Muscle rupture [Unknown]
  - Condition aggravated [Recovering/Resolving]
  - Blood cholesterol decreased [Unknown]
  - Blood cholesterol increased [Unknown]
  - Arthritis [Unknown]
  - Eye infection [Recovering/Resolving]

NARRATIVE: CASE EVENT DATE: 2014
